FAERS Safety Report 9750137 (Version 1)
Quarter: 2013Q4

REPORT INFORMATION
  Report Type: Spontaneous
  Country: US (occurrence: US)
  Receive Date: 20131212
  Receipt Date: 20131212
  Transmission Date: 20140711
  Serious: No
  Sender: FDA-Public Use
  Company Number: US-GILEAD-US-CVT-090601

PATIENT
  Sex: Male

DRUGS (8)
  1. RANEXA [Suspect]
     Indication: ANGINA PECTORIS
     Route: 048
     Dates: start: 200812
  2. NORVASC                            /00972401/ [Concomitant]
  3. TOPROL XL [Concomitant]
  4. PLAVIX [Concomitant]
  5. PROTONIX                           /01263201/ [Concomitant]
  6. IMDUR [Concomitant]
  7. LIPITOR                            /01326101/ [Concomitant]
  8. ASPIRIN                            /00002701/ [Concomitant]

REACTIONS (3)
  - Dysgeusia [Unknown]
  - Salivary hypersecretion [Unknown]
  - Nausea [Unknown]
